FAERS Safety Report 5629860-3 (Version None)
Quarter: 2008Q1

REPORT INFORMATION
  Report Type: 
  Country: None (occurrence: None)
  Receive Date: 20080214
  Receipt Date: 20080130
  Transmission Date: 20080703
  Serious: Yes (Other)
  Sender: FDA-Public Use
  Company Number: DSA_31392_2008

PATIENT
  Age: 77 Year
  Sex: Female

DRUGS (5)
  1. ENALAPRIL MALEATE AND HYDROCHLOROTHIAZIDE [Suspect]
     Indication: HYPERTENSION
     Dosage: 1 DF QD 20-12.5 MG ORAL
     Route: 048
     Dates: start: 20060704
  2. DICLOFENAC      (DICLOFENAC) 50 MG [Suspect]
     Indication: ANTIINFLAMMATORY THERAPY
     Dosage: 50 MG 1X/8 HOURS ORAL
     Route: 048
     Dates: start: 20060714
  3. ACETAMINOPHEN [Suspect]
     Indication: ANALGESIA
     Dosage: 1 G 1X8 HOURS ORAL
     Route: 048
     Dates: start: 20060714
  4. DYSPORT   (DYSPORT - BOTULINUM TOXIN TYPE A) (NOT SPECIFIED) [Suspect]
     Indication: MUSCLE SPASTICITY
     Dosage: 750 IU QD INTRAMUSCULAR
     Route: 030
     Dates: start: 20060714
  5. ARICEPT [Suspect]
     Indication: APHASIA
     Dosage: 10 MG QD ORAL
     Route: 048
     Dates: start: 20060704

REACTIONS (2)
  - DYSTONIA [None]
  - HYPOTONIA [None]
